FAERS Safety Report 9015196 (Version 1)
Quarter: 2013Q1

REPORT INFORMATION
  Report Type: Spontaneous
  Country: US (occurrence: None)
  Receive Date: 20130103
  Receipt Date: 20130103
  Transmission Date: 20140127
  Serious: Yes (Hospitalization)
  Sender: FDA-Public Use
  Company Number: JPI-P-028703

PATIENT
  Age: 50 Year
  Sex: Female

DRUGS (6)
  1. XYREM [Suspect]
     Indication: CATAPLEXY
     Route: 048
     Dates: start: 201208, end: 2012
  2. MORPHINE [Suspect]
     Indication: PAIN
     Dates: start: 2012
  3. AMPHETAMINE, DEXTROAMPHETAMINE MIXED SALTS PSYCHOSTIMULANTS AND NOOTROPICS [Concomitant]
  4. THYROID HORMONES [Concomitant]
  5. PANCRELIPASE [Concomitant]
  6. DEXLANSOPRAZOLE [Concomitant]

REACTIONS (6)
  - Folliculitis [None]
  - Necrosis [None]
  - Pancreatitis chronic [None]
  - Pancreatitis [None]
  - Headache [None]
  - Nausea [None]
